FAERS Safety Report 5787485-3 (Version None)
Quarter: 2008Q2

REPORT INFORMATION
  Report Type: 
  Country: None (occurrence: None)
  Receive Date: 20080625
  Receipt Date: 20080616
  Transmission Date: 20081010
  Serious: Yes (Hospitalization)
  Sender: FDA-Public Use
  Company Number: BE-ABBOTT-08P-013-0454229-00

PATIENT
  Sex: Female
  Weight: 75 kg

DRUGS (6)
  1. RITONAVIR SOFT GELATIN CAPSULES [Suspect]
     Indication: HIV INFECTION
     Dosage: N/A
     Route: 048
  2. KALETRA [Suspect]
     Indication: HIV INFECTION
     Dosage: 800/200 MG AS CAPSULES
     Route: 048
     Dates: start: 20051206
  3. KALETRA [Suspect]
     Dosage: 800/200 MG AS TABLETS
     Route: 048
     Dates: start: 20070424, end: 20071029
  4. EFAVIRENZ [Concomitant]
     Indication: HIV INFECTION
     Route: 048
     Dates: start: 20051206
  5. LAMIVUDINE [Concomitant]
     Indication: HIV INFECTION
     Route: 048
     Dates: start: 20051206
  6. DIDANOSINE [Concomitant]
     Indication: HIV INFECTION
     Route: 048
     Dates: start: 20051206

REACTIONS (1)
  - BASEDOW'S DISEASE [None]
